FAERS Safety Report 7559674-9 (Version None)
Quarter: 2011Q2

REPORT INFORMATION
  Report Type: 
  Country: None (occurrence: None)
  Receive Date: 20110621
  Receipt Date: 20110608
  Transmission Date: 20111010
  Serious: Yes (Other)
  Sender: FDA-Public Use
  Company Number: US-ROCHE-743301

PATIENT
  Sex: Male
  Weight: 127 kg

DRUGS (1)
  1. ACCUTANE [Suspect]
     Indication: ACNE
     Route: 065
     Dates: start: 20050101, end: 20070101

REACTIONS (11)
  - VIRAL PHARYNGITIS [None]
  - GASTROINTESTINAL INJURY [None]
  - TENDONITIS [None]
  - IRRITABLE BOWEL SYNDROME [None]
  - BRONCHITIS [None]
  - CROHN'S DISEASE [None]
  - ARTHROPATHY [None]
  - INTESTINAL OBSTRUCTION [None]
  - INFLAMMATORY BOWEL DISEASE [None]
  - COLITIS [None]
  - HEADACHE [None]
